FAERS Safety Report 5297236-7 (Version None)
Quarter: 2007Q2

REPORT INFORMATION
  Report Type: 
  Country: None (occurrence: None)
  Receive Date: 20070416
  Receipt Date: 20070403
  Transmission Date: 20071010
  Serious: Yes (Hospitalization, Other)
  Sender: FDA-Public Use
  Company Number: US-JNJFOC-20070102594

PATIENT
  Sex: Female
  Weight: 69.85 kg

DRUGS (13)
  1. REMICADE [Suspect]
     Route: 042
  2. REMICADE [Suspect]
     Route: 042
  3. REMICADE [Suspect]
     Indication: RHEUMATOID ARTHRITIS
     Route: 042
  4. LISINOPRIL [Concomitant]
     Indication: BLOOD PRESSURE
  5. ASCORBIC ACID [Concomitant]
  6. VITAMIN CAP [Concomitant]
  7. CALCIUM [Concomitant]
  8. HYDROCODONE [Concomitant]
     Indication: PAIN
  9. ARAVA [Concomitant]
     Indication: RHEUMATOID ARTHRITIS
  10. IRON [Concomitant]
  11. B12 [Concomitant]
  12. BENADRYL [Concomitant]
     Indication: PREMEDICATION
  13. SOLU-MEDROL [Concomitant]
     Indication: PREMEDICATION
     Route: 042

REACTIONS (3)
  - HAEMATURIA [None]
  - LUPUS-LIKE SYNDROME [None]
  - RAYNAUD'S PHENOMENON [None]
